FAERS Safety Report 18659332 (Version 2)
Quarter: 2021Q1

REPORT INFORMATION
  Report Type: Spontaneous
  Country: SI (occurrence: SI)
  Receive Date: 20201224
  Receipt Date: 20210130
  Transmission Date: 20210419
  Serious: Yes (Life-Threatening)
  Sender: FDA-Public Use
  Company Number: NVSC2020SI340455

PATIENT
  Age: 74 Year
  Sex: Female

DRUGS (16)
  1. ALLOPURINOL BELUPO [Concomitant]
     Active Substance: ALLOPURINOL
     Indication: HYPERURICAEMIA
     Dosage: 100 MG, QD (1X1)
     Route: 048
  2. DULCOLAX NOS [Concomitant]
     Active Substance: BISACODYL OR DOCUSATE SODIUM
     Indication: CONSTIPATION
     Dosage: 10 MG, PRN
     Route: 054
  3. DALERON [Concomitant]
     Active Substance: ACETAMINOPHEN
     Indication: PAIN
     Dosage: 500 MG, PRN (UP TO 4X1)
     Route: 048
  4. LYRICA [Concomitant]
     Active Substance: PREGABALIN
     Indication: NEUROPATHY PERIPHERAL
     Dosage: 50 MG, QD (1X1)
     Route: 048
  5. SOBYCOR [Concomitant]
     Active Substance: BISOPROLOL FUMARATE
     Indication: CARDIAC FAILURE
     Dosage: 2.5 MG (1/2 TBLPER DAY)
     Route: 048
  6. EDEMID [Concomitant]
     Active Substance: FUROSEMIDE
     Indication: CARDIAC FAILURE
     Dosage: 40 MG (1/2 TBL PER DAY)
     Route: 065
  7. ASPIRIN. [Concomitant]
     Active Substance: ASPIRIN
     Indication: PERCUTANEOUS CORONARY INTERVENTION
     Dosage: 100 MG, QD (1X1)
     Route: 048
  8. ASPIRIN. [Concomitant]
     Active Substance: ASPIRIN
     Indication: MYOCARDIAL ISCHAEMIA
  9. BERODUAL N [Concomitant]
     Active Substance: FENOTEROL HYDROBROMIDE\IPRATROPIUM BROMIDE
     Indication: ASTHMA
     Dosage: 1 DF(3X2)
     Route: 055
  10. SOBYCOR [Concomitant]
     Active Substance: BISOPROLOL FUMARATE
     Indication: ATRIAL FIBRILLATION
  11. NOLPAZA [Concomitant]
     Active Substance: PANTOPRAZOLE SODIUM
     Indication: PRODUCT USED FOR UNKNOWN INDICATION
     Dosage: 20 MG, QD (1X1) (LONG?TERM THERAPY)
     Route: 048
  12. PLIVIT D3 [Concomitant]
     Active Substance: CHOLECALCIFEROL
     Indication: HYPOVITAMINOSIS
     Dosage: 50 DRP, QW(50GTT/WEEK)
     Route: 048
  13. HEPAN [Concomitant]
     Indication: CONTUSION
     Dosage: 1 DF, BID (2X1)
     Route: 065
  14. CICLESONIDE [Concomitant]
     Active Substance: CICLESONIDE
     Indication: ASTHMA
     Dosage: 160 UG, BID
     Route: 055
  15. ENTRESTO [Suspect]
     Active Substance: SACUBITRIL\VALSARTAN
     Indication: MYOCARDIAL ISCHAEMIA
     Dosage: 1 DF, QD
     Route: 048
  16. PLAVIX [Concomitant]
     Active Substance: CLOPIDOGREL BISULFATE
     Indication: PERCUTANEOUS CORONARY INTERVENTION
     Dosage: 75 MG, QD (1X1) (LONG?TERM THERAPY)
     Route: 048

REACTIONS (1)
  - Anaphylactic shock [Recovered/Resolved]

NARRATIVE: CASE EVENT DATE: 2020
